FAERS Safety Report 15392098 (Version 2)
Quarter: 2018Q4

REPORT INFORMATION
  Report Type: Spontaneous
  Country: US (occurrence: US)
  Receive Date: 20180917
  Receipt Date: 20181011
  Transmission Date: 20190204
  Serious: No
  Sender: FDA-Public Use
  Company Number: US-PFIZER INC-2018371227

PATIENT
  Age: 60 Year
  Sex: Female

DRUGS (2)
  1. XELJANZ [Suspect]
     Active Substance: TOFACITINIB CITRATE
     Dosage: 5 MG, DAILY (A FULL TABLET DAILY)
  2. XELJANZ [Suspect]
     Active Substance: TOFACITINIB CITRATE
     Dosage: 2.5 MG, DAILY (1/2 TABLET DAILY)

REACTIONS (5)
  - Product use issue [Unknown]
  - Constipation [Unknown]
  - Hypertension [Unknown]
  - Tinnitus [Unknown]
  - Urinary hesitation [Unknown]
